FAERS Safety Report 19663851 (Version 5)
Quarter: 2022Q1

REPORT INFORMATION
  Report Type: Report from Study
  Country: BR (occurrence: BR)
  Receive Date: 20210806
  Receipt Date: 20220211
  Transmission Date: 20220424
  Serious: Yes (Hospitalization, Other)
  Sender: FDA-Public Use
  Company Number: BR-JNJFOC-20210652713

PATIENT
  Age: 82 Year
  Sex: Male
  Weight: 112.9 kg

DRUGS (16)
  1. CARFILZOMIB [Suspect]
     Active Substance: CARFILZOMIB
     Indication: Plasma cell myeloma
     Dosage: 70 MILLIGRAM/SQ. METER, QWK
     Route: 042
     Dates: start: 20201009, end: 20210616
  2. CARFILZOMIB [Suspect]
     Active Substance: CARFILZOMIB
     Dosage: 70 MILLIGRAM/SQ. METER, QWK
     Route: 042
     Dates: start: 20210628
  3. CARFILZOMIB [Suspect]
     Active Substance: CARFILZOMIB
     Dosage: 70 MILLIGRAM/SQ. METER, QWK
     Route: 042
     Dates: start: 20201009, end: 20210616
  4. CARFILZOMIB [Suspect]
     Active Substance: CARFILZOMIB
     Dosage: 70 MILLIGRAM/SQ. METER, QWK
     Route: 042
     Dates: start: 20210628, end: 20210728
  5. DARATUMUMAB [Suspect]
     Active Substance: DARATUMUMAB
     Indication: Plasma cell myeloma
     Dosage: 1800 MILLIGRAM, QWK
     Route: 058
     Dates: start: 20201009, end: 20210616
  6. DEXAMETHASONE [Concomitant]
     Active Substance: DEXAMETHASONE
     Indication: Plasma cell myeloma
     Dosage: 40 MILLIGRAM, QWK
     Route: 048
     Dates: start: 20201009, end: 20210616
  7. DEXAMETHASONE [Concomitant]
     Active Substance: DEXAMETHASONE
     Dosage: 40 MILLIGRAM, QWK
     Route: 048
     Dates: start: 20210628, end: 20210728
  8. ACYCLOVIR [Concomitant]
     Active Substance: ACYCLOVIR
     Indication: Antiviral prophylaxis
     Dosage: 400 MILLIGRAM, BID
     Route: 065
     Dates: start: 20141201
  9. BACTRIM [Concomitant]
     Active Substance: SULFAMETHOXAZOLE\TRIMETHOPRIM
     Indication: Antiviral prophylaxis
     Dosage: 160/800
     Route: 065
     Dates: start: 20141201
  10. ASPIRIN [Concomitant]
     Active Substance: ASPIRIN
     Indication: Jugular vein thrombosis
     Dosage: 100 MILLIGRAM , ONCE
     Dates: start: 20181005
  11. ATORVASTATIN CALCIUM [Concomitant]
     Active Substance: ATORVASTATIN CALCIUM
     Indication: Dyslipidaemia
     Dosage: 10 MILLIGRAM
     Dates: start: 20181005
  12. DILTIAZEM [Concomitant]
     Active Substance: DILTIAZEM
     Indication: Hypertension
     Dosage: 60 MILLIGRAM
     Route: 065
     Dates: start: 20181005
  13. SITAGLIPTIN [Concomitant]
     Active Substance: SITAGLIPTIN
     Indication: Type 2 diabetes mellitus
     Dosage: 50 MILLIGRAM
     Route: 065
     Dates: start: 20190101
  14. RIVAROXABAN [Concomitant]
     Active Substance: RIVAROXABAN
     Indication: Jugular vein thrombosis
     Dosage: 20 MILLIGRAM
     Route: 065
     Dates: start: 20200629
  15. ASPIRIN [Concomitant]
     Active Substance: ASPIRIN
     Indication: Jugular vein thrombosis
     Dosage: 100 MILLIGRAM
     Route: 065
     Dates: start: 20181005
  16. OMEPRAZOLE [Concomitant]
     Active Substance: OMEPRAZOLE
     Indication: Gastrointestinal disorder therapy
     Dosage: 40 MILLIGRAM, UNK
     Route: 065
     Dates: start: 20200905

REACTIONS (1)
  - Escherichia sepsis [Recovered/Resolved]

NARRATIVE: CASE EVENT DATE: 20210621
